FAERS Safety Report 23669673 (Version 1)
Quarter: 2024Q1

REPORT INFORMATION
  Report Type: Spontaneous
  Country: DE (occurrence: DE)
  Receive Date: 20240325
  Receipt Date: 20240325
  Transmission Date: 20240410
  Serious: Yes (Other)
  Sender: FDA-Public Use
  Company Number: DE-MALLINCKRODT-MNK202402014

PATIENT
  Age: 47 Year
  Sex: Female

DRUGS (7)
  1. UVADEX [Suspect]
     Active Substance: METHOXSALEN
     Indication: Graft versus host disease
     Dosage: UNKNOWN
     Route: 050
  2. PREDNISOLONE [Concomitant]
     Active Substance: PREDNISOLONE
  3. PREDNISOLONE [Concomitant]
     Active Substance: PREDNISOLONE
     Dosage: TAPERING DOSE
  4. CYCLOSPORINE [Concomitant]
     Active Substance: CYCLOSPORINE
     Dosage: UNKNOWN DOSE
  5. CYCLOSPORINE [Concomitant]
     Active Substance: CYCLOSPORINE
     Dosage: UNKNOWN (TAPERED DOSE)
  6. RUXOLITINIB [Concomitant]
     Active Substance: RUXOLITINIB
     Dosage: UNKNOWN DOSE
  7. RUXOLITINIB [Concomitant]
     Active Substance: RUXOLITINIB
     Dosage: UNKNOWN (TAPERED DOSE)

REACTIONS (2)
  - Intestinal stenosis [Unknown]
  - Product use in unapproved indication [Unknown]
